FAERS Safety Report 19887025 (Version 3)
Quarter: 2023Q2

REPORT INFORMATION
  Report Type: Spontaneous
  Country: DE (occurrence: DE)
  Receive Date: 20210928
  Receipt Date: 20230427
  Transmission Date: 20230721
  Serious: Yes (Other)
  Sender: FDA-Public Use
  Company Number: None

PATIENT
  Age: 12 Year
  Sex: Male

DRUGS (7)
  1. TACROLIMUS [Suspect]
     Active Substance: TACROLIMUS
     Indication: Off label use
  2. TACROLIMUS [Suspect]
     Active Substance: TACROLIMUS
     Indication: Cushing^s syndrome
  3. TACROLIMUS [Suspect]
     Active Substance: TACROLIMUS
     Indication: Pyoderma gangrenosum
  4. DAPSONE [Suspect]
     Active Substance: DAPSONE
     Indication: Product used for unknown indication
     Dosage: 75 MG, QD (1/DAY)
  5. DAPSONE [Suspect]
     Active Substance: DAPSONE
     Indication: Product used for unknown indication
     Dosage: 75 MG, QD (1/DAY)
  6. DAPSONE [Suspect]
     Active Substance: DAPSONE
     Indication: Product used for unknown indication
     Dosage: 50 MG, QD (1/DAY)
  7. DAPSONE [Suspect]
     Active Substance: DAPSONE
     Indication: Product used for unknown indication
     Dosage: 50 MG, QD (1/DAY)

REACTIONS (7)
  - Methaemoglobinaemia [Unknown]
  - Impaired healing [Unknown]
  - Product use issue [Unknown]
  - Product use in unapproved indication [Unknown]
  - Cushing^s syndrome [Unknown]
  - Off label use [Unknown]
  - Drug effective for unapproved indication [Unknown]
